FAERS Safety Report 17281923 (Version 4)
Quarter: 2022Q3

REPORT INFORMATION
  Report Type: Report from Study
  Country: US (occurrence: US)
  Receive Date: 20200117
  Receipt Date: 20220728
  Transmission Date: 20221027
  Serious: No
  Sender: FDA-Public Use
  Company Number: US-NOVARTISTESTPH-NVSC2020US007877

PATIENT
  Age: 77 Year
  Sex: Male

DRUGS (1)
  1. ENTRESTO [Suspect]
     Active Substance: SACUBITRIL\VALSARTAN
     Indication: Cardiac failure
     Dosage: 1 DOSAGE FORM, BID (24/26 MG)
     Route: 048
     Dates: start: 201912

REACTIONS (3)
  - Chronic obstructive pulmonary disease [Unknown]
  - Dyspnoea exertional [Recovered/Resolved]
  - Dysphonia [Unknown]

NARRATIVE: CASE EVENT DATE: 20191201
